FAERS Safety Report 9372855 (Version 1)
Quarter: 2013Q2

REPORT INFORMATION
  Report Type: Spontaneous
  Country: NL (occurrence: None)
  Receive Date: 20130614
  Receipt Date: 20130614
  Transmission Date: 20140414
  Serious: Yes (Life-Threatening, Hospitalization)
  Sender: FDA-Public Use
  Company Number: 2013036357

PATIENT
  Age: 11 Year
  Sex: Male

DRUGS (1)
  1. HAEMATE P [Suspect]
     Dosage: TOTAL, (NOT OTHERWISE SPECIFIED)
     Route: 042
     Dates: start: 20130524

REACTIONS (3)
  - Cardiac arrest [None]
  - Drug hypersensitivity [None]
  - Malaise [None]
